FAERS Safety Report 18413561 (Version 1)
Quarter: 2020Q4

REPORT INFORMATION
  Report Type: Spontaneous
  Country: ES (occurrence: ES)
  Receive Date: 20201022
  Receipt Date: 20201022
  Transmission Date: 20210114
  Serious: Yes (Hospitalization)
  Sender: FDA-Public Use
  Company Number: ES-ACCORD-205925

PATIENT
  Age: 73 Year
  Sex: Male
  Weight: 92 kg

DRUGS (4)
  1. DUOTRAV [Concomitant]
     Active Substance: TIMOLOL MALEATE\TRAVOPROST
     Indication: GLAUCOMA
     Dosage: 40 MICROGRAMS / ML + 5 MG / ML EYE DROPS IN SOLUTION, 1 BOTTLE OF 2.5
     Route: 047
  2. GEMCITABINE/GEMCITABINE HYDROCHLORIDE [Suspect]
     Active Substance: GEMCITABINE\GEMCITABINE HYDROCHLORIDE
     Indication: ADJUVANT THERAPY
     Route: 042
     Dates: start: 20200729, end: 20200830
  3. CAPECITABINE. [Suspect]
     Active Substance: CAPECITABINE
     Indication: PRODUCT USED FOR UNKNOWN INDICATION
     Dosage: 1500 MG EVERY 12 H
     Route: 048
     Dates: start: 20200729, end: 20200830
  4. OMEPRAZOLE AUTOVITAS SPAIN [Concomitant]
     Dosage: 20 MG
     Route: 048

REACTIONS (1)
  - Cerebellar stroke [Recovering/Resolving]

NARRATIVE: CASE EVENT DATE: 20200830
